FAERS Safety Report 17949755 (Version 1)
Quarter: 2020Q2

REPORT INFORMATION
  Report Type: Report from Study
  Country: US (occurrence: US)
  Receive Date: 20200625
  Receipt Date: 20200625
  Transmission Date: 20200714
  Serious: Yes (Hospitalization)
  Sender: FDA-Public Use
  Company Number: US-ACTELION-A-NJ2020-206367

PATIENT
  Sex: Female
  Weight: 6.8 kg

DRUGS (2)
  1. TADALAFIL. [Concomitant]
     Active Substance: TADALAFIL
  2. TRACLEER [Suspect]
     Active Substance: BOSENTAN
     Indication: PULMONARY ARTERIAL HYPERTENSION
     Dosage: 16 MG, QD

REACTIONS (4)
  - Inappropriate schedule of product administration [Unknown]
  - Cardiac pacemaker insertion [Unknown]
  - Cough [Unknown]
  - Pneumonia [Unknown]
